FAERS Safety Report 8129779-2 (Version None)
Quarter: 2012Q1

REPORT INFORMATION
  Report Type: 
  Country: None (occurrence: None)
  Receive Date: 20120210
  Receipt Date: 20120210
  Transmission Date: 20120608
  Serious: Yes (Life-Threatening, Hospitalization)
  Sender: FDA-Public Use
  Company Number: None

PATIENT
  Age: 53 Year
  Sex: Female
  Weight: 86.182 kg

DRUGS (2)
  1. RISPERDAL [Suspect]
     Indication: PERSONALITY DISORDER
     Dosage: .5 MG
     Dates: start: 20010101, end: 20080701
  2. RISPERDAL [Suspect]
     Indication: BIPOLAR DISORDER
     Dosage: .5 MG
     Dates: start: 20010101, end: 20080701

REACTIONS (2)
  - TRANSIENT ISCHAEMIC ATTACK [None]
  - CEREBROVASCULAR ACCIDENT [None]
